FAERS Safety Report 15536232 (Version 1)
Quarter: 2018Q4

REPORT INFORMATION
  Report Type: Spontaneous
  Country: BR (occurrence: BR)
  Receive Date: 20181021
  Receipt Date: 20181021
  Transmission Date: 20190205
  Serious: Yes (Disabling)
  Sender: FDA-Public Use
  Company Number: None

PATIENT
  Age: 25 Year
  Sex: Male
  Weight: 77 kg

DRUGS (1)
  1. FINASTERIDE 2.5MG UNCERTAIN [Suspect]
     Active Substance: FINASTERIDE
     Indication: ANDROGENETIC ALOPECIA
     Dosage: ?          QUANTITY:1 300ML;OTHER ROUTE:LIQUID SOLUTION APPLIED TO HAIR SCALP?
     Dates: start: 20180401, end: 20180515

REACTIONS (8)
  - Sexual dysfunction [None]
  - Anxiety [None]
  - Vision blurred [None]
  - Libido decreased [None]
  - Sperm concentration decreased [None]
  - Disturbance in attention [None]
  - Depression [None]
  - Spermatozoa abnormal [None]

NARRATIVE: CASE EVENT DATE: 20180715
